FAERS Safety Report 15368074 (Version 1)
Quarter: 2018Q3

REPORT INFORMATION
  Report Type: Spontaneous
  Country: US (occurrence: US)
  Receive Date: 20180904
  Receipt Date: 20180904
  Transmission Date: 20181010
  Serious: Yes (Death)
  Sender: FDA-Public Use
  Company Number: None

PATIENT
  Age: 59 Year
  Sex: Female
  Weight: 53.55 kg

DRUGS (2)
  1. 5 FLUOROURACIL [Concomitant]
     Active Substance: FLUOROURACIL
     Dates: start: 20180716
  2. MITOMYCIN C [Suspect]
     Active Substance: MITOMYCIN
     Indication: ANAL CANCER STAGE III
     Route: 040
     Dates: start: 20180716

REACTIONS (2)
  - Interstitial lung disease [None]
  - Proctitis [None]

NARRATIVE: CASE EVENT DATE: 20180822
